FAERS Safety Report 4313850-7 (Version None)
Quarter: 2004Q1

REPORT INFORMATION
  Report Type: 
  Country: None (occurrence: None)
  Receive Date: 20040308
  Receipt Date: 20031107
  Transmission Date: 20041129
  Serious: Yes (Hospitalization)
  Sender: FDA-Public Use
  Company Number: WAES 0311FRA00019

PATIENT
  Age: 81 Year
  Sex: Male

DRUGS (8)
  1. HYDROCHLOROTHIAZIDE AND IRBESARTAN [Concomitant]
     Indication: HYPERTENSION
     Route: 048
  2. METHYLPREDNISOLONE SODIUM SUCCINATE [Suspect]
     Indication: SCIATICA
     Route: 030
     Dates: start: 20030901, end: 20030908
  3. ACETAMINOPHEN AND CAFFEINE AND PROPOXYPHENE HYDROCHLORIDE [Concomitant]
     Route: 048
  4. AMLODIPINE BESYLATE [Concomitant]
     Route: 048
  5. BUFLOMEDIL HYDROCHLORIDE [Concomitant]
     Route: 048
  6. DILTIAZEM MALATE [Concomitant]
     Route: 048
  7. GLICLAZIDE [Concomitant]
     Indication: DIABETES MELLITUS
     Route: 048
  8. VIOXX [Suspect]
     Indication: SCIATICA
     Route: 048
     Dates: start: 20031017, end: 20031027

REACTIONS (3)
  - DIVERTICULUM INTESTINAL [None]
  - RECTAL HAEMORRHAGE [None]
  - SHOCK HAEMORRHAGIC [None]
